FAERS Safety Report 8172733-5 (Version None)
Quarter: 2012Q1

REPORT INFORMATION
  Report Type: 
  Country: None (occurrence: None)
  Receive Date: 20120229
  Receipt Date: 20120222
  Transmission Date: 20120608
  Serious: Yes (Other)
  Sender: FDA-Public Use
  Company Number: BR-ABBOTT-11P-020-0839394-00

PATIENT
  Sex: Female
  Weight: 87 kg

DRUGS (7)
  1. HUMIRA [Suspect]
  2. HUMIRA [Suspect]
     Indication: RHEUMATOID ARTHRITIS
     Dates: end: 20110801
  3. PAXTRAT [Concomitant]
     Indication: ANTIDEPRESSANT THERAPY
  4. SYNTHROID [Concomitant]
     Indication: THYROID DISORDER
  5. OMEPRAZOLE [Concomitant]
     Indication: GASTRIC DISORDER
  6. PREDNISONE [Concomitant]
     Indication: PAIN
     Dosage: 2.5MG; 1/2 TABLET PER DAY
  7. DIOVAN [Concomitant]
     Indication: HYPERTENSION

REACTIONS (2)
  - PAIN [None]
  - ARTHROPATHY [None]
